FAERS Safety Report 20623190 (Version 6)
Quarter: 2022Q4

REPORT INFORMATION
  Report Type: Report from Study
  Country: CA (occurrence: CA)
  Receive Date: 20220322
  Receipt Date: 20221208
  Transmission Date: 20230113
  Serious: Yes (Other)
  Sender: FDA-Public Use
  Company Number: CA-OTSUKA-2022_012369

PATIENT
  Sex: Male

DRUGS (2)
  1. CEDAZURIDINE\DECITABINE [Suspect]
     Active Substance: CEDAZURIDINE\DECITABINE
     Indication: Myelodysplastic syndrome
     Dosage: 1 DF QD (1 TABLET DAILY) FOR 5 DAYS
     Route: 065
     Dates: start: 20220301
  2. CEDAZURIDINE\DECITABINE [Suspect]
     Active Substance: CEDAZURIDINE\DECITABINE
     Dosage: 1 DF, QD (1 TABLET DAILY) FOR 4 DAY (ON FOUR TABLETS)
     Route: 065
     Dates: end: 20221129

REACTIONS (13)
  - Full blood count abnormal [Unknown]
  - Haemoglobin decreased [Unknown]
  - Renal disorder [Unknown]
  - Somnolence [Unknown]
  - Biopsy bone marrow [Unknown]
  - Lethargy [Unknown]
  - Dizziness [Unknown]
  - Asthenia [Unknown]
  - Nausea [Unknown]
  - Vomiting [Not Recovered/Not Resolved]
  - Fatigue [Unknown]
  - Product use issue [Unknown]
  - Therapy cessation [Unknown]
